FAERS Safety Report 8263108-9 (Version None)
Quarter: 2012Q2

REPORT INFORMATION
  Report Type: 
  Country: None (occurrence: None)
  Receive Date: 20120405
  Receipt Date: 20120329
  Transmission Date: 20120825
  Serious: Yes (Hospitalization)
  Sender: FDA-Public Use
  Company Number: US-BAYER-2012-031289

PATIENT
  Age: 48 Year
  Sex: Female
  Weight: 58.957 kg

DRUGS (3)
  1. PERCOCET [Concomitant]
     Dosage: UNK
     Dates: start: 20100701
  2. YAZ [Suspect]
  3. BACTRIM DS [Concomitant]
     Indication: URINARY TRACT INFECTION
     Dosage: UNK
     Dates: start: 20100701

REACTIONS (1)
  - DEEP VEIN THROMBOSIS [None]
